FAERS Safety Report 15742318 (Version 1)
Quarter: 2018Q4

REPORT INFORMATION
  Report Type: Spontaneous
  Country: US (occurrence: US)
  Receive Date: 20181219
  Receipt Date: 20181219
  Transmission Date: 20190205
  Serious: No
  Sender: FDA-Public Use
  Company Number: None

PATIENT
  Sex: Female

DRUGS (2)
  1. TOLTERODINE TARTRATE TABS [Suspect]
     Active Substance: TOLTERODINE TARTRATE
  2. TOLTERODINE TARTRATE TABS [Suspect]
     Active Substance: TOLTERODINE TARTRATE

REACTIONS (1)
  - Drug ineffective [None]
